FAERS Safety Report 9416317 (Version 1)
Quarter: 2013Q3

REPORT INFORMATION
  Report Type: Spontaneous
  Country: US (occurrence: US)
  Receive Date: 20130724
  Receipt Date: 20130724
  Transmission Date: 20140515
  Serious: Yes (Hospitalization)
  Sender: FDA-Public Use
  Company Number: US-BAYER-2013-088659

PATIENT
  Age: 25 Year
  Sex: Female

DRUGS (5)
  1. YAZ [Suspect]
     Indication: DYSMENORRHOEA
  2. YAZ [Suspect]
     Indication: CONTRACEPTION
  3. BEYAZ [Suspect]
  4. GIANVI [Suspect]
  5. RIZATRIPTAN [Concomitant]

REACTIONS (1)
  - Intracranial venous sinus thrombosis [None]
